FAERS Safety Report 6292601-3 (Version None)
Quarter: 2009Q3

REPORT INFORMATION
  Report Type: 
  Country: None (occurrence: None)
  Receive Date: 20090729
  Receipt Date: 20090720
  Transmission Date: 20100115
  Serious: Yes (Hospitalization, Other)
  Sender: FDA-Public Use
  Company Number: ADR10542009

PATIENT
  Age: 60 Year
  Sex: Male

DRUGS (10)
  1. AMLODIPINE [Suspect]
     Indication: HYPERTENSION
     Dosage: 10MG ORAL
     Route: 048
     Dates: start: 20080420, end: 20080422
  2. AMIODARONE HCL [Concomitant]
  3. ASPIRIN [Concomitant]
  4. ATORVASTATIN [Concomitant]
  5. BISOPROLOL [Concomitant]
  6. CITALOPRAM [Concomitant]
  7. DOXAZOSIN MESYLATE [Concomitant]
  8. FUROSEMIDE [Concomitant]
  9. GLICLAZIDE [Concomitant]
  10. LANSOPRAZOLE [Concomitant]

REACTIONS (2)
  - DRUG ERUPTION [None]
  - VASCULITIS [None]
